FAERS Safety Report 4691153-9 (Version None)
Quarter: 2005Q2

REPORT INFORMATION
  Report Type: 
  Country: None (occurrence: None)
  Receive Date: 20050615
  Receipt Date: 20050608
  Transmission Date: 20051028
  Serious: Yes (Other)
  Sender: FDA-Public Use
  Company Number: 200515408GDDC

PATIENT
  Age: 88 Year
  Sex: Female

DRUGS (1)
  1. ALLEGRA [Suspect]
     Dosage: DOSE: 1 TABLET
     Route: 048
     Dates: start: 20050525

REACTIONS (1)
  - HYPERTENSION [None]
